FAERS Safety Report 24436989 (Version 1)
Quarter: 2024Q4

REPORT INFORMATION
  Report Type: Spontaneous
  Country: US (occurrence: US)
  Receive Date: 20241015
  Receipt Date: 20241015
  Transmission Date: 20250115
  Serious: Yes (Other)
  Sender: STRIDES
  Company Number: US-STRIDES PHARMA UK LTD.-2024SP010078

PATIENT

DRUGS (10)
  1. PREDNISOLONE [Suspect]
     Active Substance: PREDNISOLONE
     Indication: Foreign body reaction
     Dosage: 60 MILLIGRAM;2-WEEK TAPER STARTING AT 60MG
     Route: 065
  2. PREDNISOLONE [Suspect]
     Active Substance: PREDNISOLONE
     Dosage: 30 MILLIGRAM, QD
     Route: 065
  3. PREDNISOLONE [Suspect]
     Active Substance: PREDNISOLONE
     Dosage: 15 MILLIGRAM
     Route: 065
  4. DOXYCYCLINE [Suspect]
     Active Substance: DOXYCYCLINE
     Indication: Foreign body reaction
     Dosage: 100 MILLIGRAM, BID
     Route: 065
  5. METHOTREXATE [Suspect]
     Active Substance: METHOTREXATE
     Indication: Foreign body reaction
     Dosage: UNK
     Route: 065
  6. VITAMIN C [Concomitant]
     Active Substance: ASCORBIC ACID
     Indication: Microneedling
     Dosage: UNK
     Route: 062
  7. HYALURONIC ACID [Concomitant]
     Active Substance: HYALURONIC ACID
     Indication: Microneedling
     Dosage: UNK
     Route: 062
  8. TRIAMCINOLONE [Concomitant]
     Active Substance: TRIAMCINOLONE
     Indication: Foreign body reaction
     Dosage: UNK, 10 TO 30 MG/CC FOR APPROXIMATELY 2 WEEKS
     Route: 026
  9. HYALURONIDASE [Concomitant]
     Active Substance: HYALURONIDASE
     Indication: Foreign body reaction
     Dosage: UNK, INJECTION
     Route: 065
  10. FOLIC ACID [Concomitant]
     Active Substance: FOLIC ACID
     Indication: Foreign body reaction
     Dosage: UNK
     Route: 065

REACTIONS (2)
  - Atypical mycobacterial infection [Unknown]
  - Off label use [Unknown]
